FAERS Safety Report 6898168-0 (Version None)
Quarter: 2010Q3

REPORT INFORMATION
  Report Type: 
  Country: None (occurrence: None)
  Receive Date: 20100802
  Receipt Date: 20070830
  Transmission Date: 20110219
  Serious: No
  Sender: FDA-Public Use
  Company Number: US-PFIZER INC-2007074030

PATIENT
  Sex: Female
  Weight: 63.6 kg

DRUGS (6)
  1. LYRICA [Suspect]
     Indication: COMPLEX REGIONAL PAIN SYNDROME
     Dates: start: 20070601
  2. FEMHRT [Concomitant]
     Indication: HORMONE REPLACEMENT THERAPY
  3. CELEBREX [Concomitant]
  4. LEXAPRO [Concomitant]
  5. HYDROCHLOROTHIAZIDE [Concomitant]
     Indication: BLOOD PRESSURE
  6. ACTONEL [Concomitant]

REACTIONS (1)
  - WEIGHT INCREASED [None]
